FAERS Safety Report 5696573-1 (Version None)
Quarter: 2008Q2

REPORT INFORMATION
  Report Type: 
  Country: None (occurrence: None)
  Receive Date: 20080408
  Receipt Date: 20080408
  Transmission Date: 20081010
  Serious: Yes (Death)
  Sender: FDA-Public Use
  Company Number: None

PATIENT
  Age: 83 Year
  Sex: Male
  Weight: 74.3 kg

DRUGS (1)
  1. HEPARIN [Suspect]
     Indication: CATHETER RELATED COMPLICATION
     Dosage: 6000UNITS PER 6LITER SOLUTION WEEKLY/PRN INTRAPERITO
     Route: 033

REACTIONS (9)
  - ASTHENIA [None]
  - BRADYCARDIA [None]
  - DECREASED APPETITE [None]
  - GAIT DISTURBANCE [None]
  - GASTROINTESTINAL HAEMORRHAGE [None]
  - GENERAL PHYSICAL HEALTH DETERIORATION [None]
  - MENTAL IMPAIRMENT [None]
  - PRESYNCOPE [None]
  - REFUSAL OF TREATMENT BY PATIENT [None]
